FAERS Safety Report 10445930 (Version 1)
Quarter: 2014Q3

REPORT INFORMATION
  Report Type: Spontaneous
  Country: ES (occurrence: ES)
  Receive Date: 20140910
  Receipt Date: 20140910
  Transmission Date: 20150326
  Serious: Yes (Death, Other)
  Sender: FDA-Public Use
  Company Number: PHHY2014ES115673

PATIENT

DRUGS (4)
  1. ACETYLSALICYLIC ACID [Suspect]
     Active Substance: ASPIRIN
     Route: 064
  2. FONDAPARINUX [Suspect]
     Active Substance: FONDAPARINUX
     Route: 064
  3. PREDNISONE. [Suspect]
     Active Substance: PREDNISONE
     Route: 064
  4. HYDROXYCHLOROQUINE [Suspect]
     Active Substance: HYDROXYCHLOROQUINE
     Route: 064

REACTIONS (4)
  - Premature baby [Unknown]
  - Death [Fatal]
  - Foetal growth restriction [Unknown]
  - Foetal exposure during pregnancy [Unknown]
